FAERS Safety Report 12835190 (Version 1)
Quarter: 2016Q4

REPORT INFORMATION
  Report Type: Spontaneous
  Country: US (occurrence: US)
  Receive Date: 20161011
  Receipt Date: 20161011
  Transmission Date: 20170207
  Serious: No
  Sender: FDA-Public Use
  Company Number: US-TAIHO ONCOLOGY INC-EU-2016-02567

PATIENT
  Age: 65 Year
  Sex: Male

DRUGS (7)
  1. LONSURF [Suspect]
     Active Substance: TIPIRACIL HYDROCHLORIDE\TRIFLURIDINE
     Indication: COLON CANCER
     Route: 048
     Dates: start: 20160630
  2. MONODOX [Concomitant]
     Active Substance: DOXYCYCLINE
     Dosage: NI
  3. HYDROCODONE [Concomitant]
     Active Substance: HYDROCODONE
     Dosage: NI
  4. METOPROLOL TARTRATE. [Concomitant]
     Active Substance: METOPROLOL TARTRATE
     Dosage: NI
  5. CAPTOPRIL. [Concomitant]
     Active Substance: CAPTOPRIL
     Dosage: NI
  6. METFORMIN [Concomitant]
     Active Substance: METFORMIN HYDROCHLORIDE
     Dosage: NI
  7. ELIQUIS [Concomitant]
     Active Substance: APIXABAN
     Dosage: NI

REACTIONS (1)
  - White blood cell count decreased [Unknown]

NARRATIVE: CASE EVENT DATE: 201609
